FAERS Safety Report 12214937 (Version 1)
Quarter: 2016Q1

REPORT INFORMATION
  Report Type: Spontaneous
  Country: US (occurrence: US)
  Receive Date: 20160328
  Receipt Date: 20160328
  Transmission Date: 20160526
  Serious: No
  Sender: FDA-Public Use
  Company Number: US-WARNER CHILCOTT, LLC-1049811

PATIENT
  Sex: Female

DRUGS (1)
  1. ESTRACE [Suspect]
     Active Substance: ESTRADIOL
     Route: 061

REACTIONS (2)
  - Urethritis noninfective [Recovered/Resolved with Sequelae]
  - Application site pain [Recovered/Resolved with Sequelae]
